FAERS Safety Report 22593782 (Version 1)
Quarter: 2023Q2

REPORT INFORMATION
  Report Type: Spontaneous
  Country: US (occurrence: US)
  Receive Date: 20230613
  Receipt Date: 20230613
  Transmission Date: 20230721
  Serious: Yes (Other)
  Sender: FDA-Public Use
  Company Number: US-Hikma Pharmaceuticals USA Inc.-US-H14001-23-01961

PATIENT
  Sex: Female

DRUGS (1)
  1. PREDNISONE [Suspect]
     Active Substance: PREDNISONE
     Indication: Product used for unknown indication
     Dosage: UNKNOWN
     Route: 065

REACTIONS (7)
  - Collagen disorder [Unknown]
  - Ligament disorder [Unknown]
  - Rotator cuff syndrome [Unknown]
  - Muscle strain [Unknown]
  - Skin laceration [Unknown]
  - Contusion [Unknown]
  - Muscular weakness [Unknown]
